FAERS Safety Report 17242536 (Version 1)
Quarter: 2020Q1

REPORT INFORMATION
  Report Type: Spontaneous
  Country: SE (occurrence: SE)
  Receive Date: 20200107
  Receipt Date: 20200107
  Transmission Date: 20200409
  Serious: Yes (Hospitalization)
  Sender: FDA-Public Use
  Company Number: SE-MYLANLABS-2020M1001488

PATIENT
  Age: 19 Year
  Sex: Female

DRUGS (1)
  1. LERGIGAN (PROMETHAZINE) [Suspect]
     Active Substance: PROMETHAZINE HYDROCHLORIDE
     Indication: PRODUCT USED FOR UNKNOWN INDICATION
     Dosage: 2 TABLETTER PA MORGONEN. KL. 12 YTTERLIGARE 18 TABLETTER
     Route: 048
     Dates: start: 20180829, end: 20180829

REACTIONS (5)
  - Intentional overdose [Unknown]
  - Erythema [Unknown]
  - Abdominal tenderness [Unknown]
  - Nausea [Unknown]
  - Intentional self-injury [Unknown]

NARRATIVE: CASE EVENT DATE: 20180829
